FAERS Safety Report 9821100 (Version 1)
Quarter: 2014Q1

REPORT INFORMATION
  Report Type: Spontaneous
  Country: FR (occurrence: None)
  Receive Date: 20140114
  Receipt Date: 20140114
  Transmission Date: 20141002
  Serious: Yes (Life-Threatening, Hospitalization)
  Sender: FDA-Public Use
  Company Number: 2014P1000245

PATIENT
  Age: 44 Year
  Sex: Female

DRUGS (12)
  1. PLAQUENIL [Suspect]
     Route: 048
     Dates: end: 201312
  2. CORTANCYL [Suspect]
     Route: 048
     Dates: end: 201312
  3. METHYLPREDNISOLONE [Suspect]
     Route: 042
     Dates: start: 20131116, end: 20131117
  4. MABTHERA [Suspect]
     Route: 042
     Dates: start: 20131201
  5. PREVISCAN [Concomitant]
  6. ALL OTHER THERAPEUTIC PRODUCTS [Concomitant]
  7. APROVEL [Concomitant]
  8. CACIT D3 [Concomitant]
  9. DAFALGAN [Concomitant]
  10. INEXIUM [Concomitant]
  11. AERIUS [Concomitant]
  12. LIPANTHYL [Concomitant]

REACTIONS (6)
  - Pneumonia [None]
  - Dyspnoea [None]
  - Atrial fibrillation [None]
  - Acute respiratory distress syndrome [None]
  - Simplex virus test positive [None]
  - Lung disorder [None]
